FAERS Safety Report 4532919-5 (Version None)
Quarter: 2004Q4

REPORT INFORMATION
  Report Type: 
  Country: None (occurrence: None)
  Receive Date: 20041206
  Receipt Date: 20041012
  Transmission Date: 20050328
  Serious: No
  Sender: FDA-Public Use
  Company Number: USA041080864

PATIENT
  Age: 39 Year
  Sex: Female
  Weight: 66 kg

DRUGS (3)
  1. CYMBALTA [Suspect]
     Indication: DEPRESSION
     Dosage: 60 MG/1 IN THE MORNING
     Dates: start: 20041012
  2. BEXTRA [Concomitant]
  3. HYDROCHLOROTHIAZIDE [Concomitant]

REACTIONS (2)
  - STOMACH DISCOMFORT [None]
  - THIRST [None]
